FAERS Safety Report 24280912 (Version 1)
Quarter: 2024Q3

REPORT INFORMATION
  Report Type: Spontaneous
  Country: US (occurrence: US)
  Receive Date: 20240904
  Receipt Date: 20240904
  Transmission Date: 20241016
  Serious: Yes (Other)
  Sender: AMGEN
  Company Number: US-AMGEN-USASP2024173688

PATIENT
  Age: 65 Year
  Sex: Male

DRUGS (4)
  1. PREDNISONE [Suspect]
     Active Substance: PREDNISONE
     Indication: Chronic lymphocytic inflammation with pontine perivascular enhancement responsive to steroids
     Dosage: TAPER
     Route: 065
  2. RITUXIMAB [Suspect]
     Active Substance: RITUXIMAB
     Indication: Chronic lymphocytic inflammation with pontine perivascular enhancement responsive to steroids
     Dosage: UNK, TOTAL 2 GRAMS
     Route: 065
  3. HUMAN IMMUNOGLOBULIN G [Concomitant]
     Active Substance: HUMAN IMMUNOGLOBULIN G
     Indication: Chronic lymphocytic inflammation with pontine perivascular enhancement responsive to steroids
     Dosage: 2 MILLIGRAM/KILOGRAM, DIVIDED OVER 5 DAYS
     Route: 065
  4. METHYLPREDNISOLONE [Concomitant]
     Active Substance: METHYLPREDNISOLONE
     Indication: Chronic lymphocytic inflammation with pontine perivascular enhancement responsive to steroids
     Dosage: 2-WEEK COURSE
     Route: 042

REACTIONS (3)
  - Chronic lymphocytic inflammation with pontine perivascular enhancement responsive to steroids [Unknown]
  - Drug effective for unapproved indication [Unknown]
  - Off label use [Unknown]
